FAERS Safety Report 4988666-9 (Version None)
Quarter: 2006Q2

REPORT INFORMATION
  Report Type: 
  Country: None (occurrence: None)
  Receive Date: 20060502
  Receipt Date: 20051215
  Transmission Date: 20061013
  Serious: Yes (Hospitalization, Other)
  Sender: FDA-Public Use
  Company Number: US-MERCK-0512USA02464

PATIENT
  Age: 40 Year
  Sex: Female

DRUGS (1)
  1. VIOXX [Suspect]
     Route: 048

REACTIONS (27)
  - ARTHRALGIA [None]
  - BACK INJURY [None]
  - BACK PAIN [None]
  - BLOOD PRESSURE DIASTOLIC INCREASED [None]
  - CARDIAC DISORDER [None]
  - CARPAL TUNNEL SYNDROME [None]
  - CHEST PAIN [None]
  - CHONDROMALACIA [None]
  - DEPRESSION [None]
  - DIZZINESS [None]
  - FALL [None]
  - HEADACHE [None]
  - INTERVERTEBRAL DISC PROTRUSION [None]
  - MENISCUS LESION [None]
  - MYOCARDIAL INFARCTION [None]
  - NAUSEA [None]
  - PAIN [None]
  - PATELLOFEMORAL PAIN SYNDROME [None]
  - PERIPHERAL NERVE DECOMPRESSION [None]
  - PNEUMONIA [None]
  - PULMONARY CONGESTION [None]
  - RADICULOPATHY [None]
  - SPINAL DISORDER [None]
  - SYNOVITIS [None]
  - TEARFULNESS [None]
  - TRICUSPID VALVE INCOMPETENCE [None]
  - ULNAR NERVE PALSY [None]
